FAERS Safety Report 6193947-X (Version None)
Quarter: 2009Q2

REPORT INFORMATION
  Report Type: 
  Country: None (occurrence: None)
  Receive Date: 20090518
  Receipt Date: 20090507
  Transmission Date: 20091009
  Serious: Yes (Other)
  Sender: FDA-Public Use
  Company Number: PHHY2009BR13554

PATIENT
  Sex: Female
  Weight: 48 kg

DRUGS (7)
  1. TEGRETOL [Suspect]
     Indication: EPILEPSY
     Dosage: 200 MG, UNK
     Route: 048
     Dates: start: 19970101
  2. TEGRETOL [Suspect]
     Dosage: 3 DF, UNK
     Route: 048
  3. TRILEPTAL [Suspect]
     Indication: CONVULSION
     Dosage: 300 MG, TID
     Route: 048
     Dates: start: 20060101
  4. TRILEPTAL [Suspect]
     Dosage: 2 TABLETS AND HALF DAILY
     Dates: start: 20080101
  5. DIAZEPAM [Concomitant]
     Dosage: UNK
     Dates: start: 20060101
  6. PHENOBARBITAL [Concomitant]
     Indication: CONVULSION
     Dosage: 1 DF, QHS
     Route: 048
     Dates: start: 20000101
  7. FRISIUM [Concomitant]
     Indication: SLEEP DISORDER
     Dosage: 0.5 DF, TID
     Route: 048
     Dates: start: 20070101

REACTIONS (12)
  - AGITATION [None]
  - ASTHENIA [None]
  - CONVULSION [None]
  - DIZZINESS [None]
  - INSOMNIA [None]
  - MIDDLE INSOMNIA [None]
  - NERVOUSNESS [None]
  - PARAESTHESIA [None]
  - SKIN GRAFT [None]
  - TENSION [None]
  - TREMOR [None]
  - VISION BLURRED [None]
